FAERS Safety Report 17656576 (Version 1)
Quarter: 2020Q2

REPORT INFORMATION
  Report Type: Spontaneous
  Country: US (occurrence: US)
  Receive Date: 20200410
  Receipt Date: 20200410
  Transmission Date: 20200713
  Serious: Yes (Other)
  Sender: FDA-Public Use
  Company Number: None

PATIENT
  Age: 25 Year
  Sex: Female
  Weight: 79.65 kg

DRUGS (2)
  1. AIMOVIG [Concomitant]
     Active Substance: ERENUMAB-AOOE
     Dates: start: 20200407
  2. AIMOVIG [Suspect]
     Active Substance: ERENUMAB-AOOE
     Indication: MIGRAINE
     Dosage: ?          OTHER FREQUENCY:SQ MONTHLY;?
     Route: 058
     Dates: start: 20200407

REACTIONS (5)
  - Insomnia [None]
  - Headache [None]
  - Feeling abnormal [None]
  - Dyskinesia [None]
  - Pain of skin [None]

NARRATIVE: CASE EVENT DATE: 20200410
